FAERS Safety Report 12517118 (Version 1)
Quarter: 2016Q2

REPORT INFORMATION
  Report Type: Spontaneous
  Country: GB (occurrence: GB)
  Receive Date: 20160630
  Receipt Date: 20160630
  Transmission Date: 20160815
  Serious: Yes (Hospitalization)
  Sender: FDA-Public Use
  Company Number: GB-PFIZER INC-2016315270

PATIENT
  Age: 86 Year
  Sex: Male

DRUGS (11)
  1. SPIRONOLACTONE. [Suspect]
     Active Substance: SPIRONOLACTONE
     Dosage: 25 MG, 1X/DAY
     Dates: end: 20160522
  2. CLOPIDOGREL [Concomitant]
     Active Substance: CLOPIDOGREL BISULFATE
     Dosage: 75 MG, 1X/DAY
  3. BUMETANIDE. [Suspect]
     Active Substance: BUMETANIDE
     Dosage: 16 MG, 1X/DAY
     Dates: end: 20160522
  4. PERINDOPRIL ERBUMINE. [Suspect]
     Active Substance: PERINDOPRIL ERBUMINE
     Dates: end: 20160522
  5. OMEPRAZOLE. [Concomitant]
     Active Substance: OMEPRAZOLE
     Dosage: 20 MG, 1X/DAY
  6. ISOSORBIDE MONONITRATE. [Concomitant]
     Active Substance: ISOSORBIDE MONONITRATE
     Dosage: MORNING
  7. TAMSULOSIN [Concomitant]
     Active Substance: TAMSULOSIN
     Dosage: MORNING.
  8. FEXOFENADINE [Concomitant]
     Active Substance: FEXOFENADINE\FEXOFENADINE HYDROCHLORIDE
     Dosage: EVERY MORNING
  9. FINASTERIDE. [Concomitant]
     Active Substance: FINASTERIDE
  10. PRAVASTATIN [Concomitant]
     Active Substance: PRAVASTATIN\PRAVASTATIN SODIUM
     Dosage: AT NIGHT
  11. FOLIC ACID. [Concomitant]
     Active Substance: FOLIC ACID
     Dosage: 5 MG, 1X/DAY

REACTIONS (3)
  - Dehydration [Unknown]
  - Anaemia [Unknown]
  - Acute kidney injury [Recovering/Resolving]
